FAERS Safety Report 8743163 (Version 2)
Quarter: 2012Q4

REPORT INFORMATION
  Report Type: 
  Country: US (occurrence: US)
  Receive Date: 20120824
  Receipt Date: 20120913
  Transmission Date: 20130627
  Serious: No
  Sender: FDA-Public Use
  Company Number: US-009507513-1208USA008428

PATIENT

DRUGS (2)
  1. NEXPLANON [Suspect]
     Indication: MENSTRUATION IRREGULAR
     Dosage: UNK
     Route: 059
     Dates: start: 20120806, end: 20120813
  2. NEXPLANON [Suspect]
     Dosage: UNK
     Route: 059
     Dates: start: 20120813

REACTIONS (3)
  - Implant site pain [Recovered/Resolved]
  - Medical device complication [Recovered/Resolved]
  - Off label use [Not Recovered/Not Resolved]
